FAERS Safety Report 13518962 (Version 3)
Quarter: 2017Q2

REPORT INFORMATION
  Report Type: Spontaneous
  Country: US (occurrence: US)
  Receive Date: 20170505
  Receipt Date: 20170628
  Transmission Date: 20170830
  Serious: Yes (Other)
  Sender: FDA-Public Use
  Company Number: US-BAYER-2017-085099

PATIENT
  Age: 36 Year
  Sex: Female
  Weight: 83.9 kg

DRUGS (1)
  1. SKYLA [Suspect]
     Active Substance: LEVONORGESTREL
     Indication: CONTRACEPTION
     Dosage: 14 MCG/24HR, CONT
     Route: 015
     Dates: start: 20170421, end: 20170421

REACTIONS (6)
  - Embedded device [Recovered/Resolved]
  - Device used for unapproved schedule [None]
  - Device difficult to use [Recovered/Resolved]
  - Procedural pain [Recovered/Resolved]
  - Complication of device insertion [Recovered/Resolved]
  - Device deployment issue [Recovered/Resolved]

NARRATIVE: CASE EVENT DATE: 20170421
